FAERS Safety Report 24057588 (Version 1)
Quarter: 2024Q3

REPORT INFORMATION
  Report Type: Spontaneous
  Country: US (occurrence: None)
  Receive Date: 20240706
  Receipt Date: 20240706
  Transmission Date: 20241017
  Serious: No
  Sender: ASTRAZENECA
  Company Number: 2024A147780

PATIENT
  Sex: Female

DRUGS (1)
  1. BUDESONIDE\FORMOTEROL [Suspect]
     Active Substance: BUDESONIDE\FORMOTEROL
     Route: 055

REACTIONS (7)
  - Oropharyngeal discomfort [Unknown]
  - Dysphagia [Unknown]
  - Dysphonia [Unknown]
  - Lip swelling [Unknown]
  - Skin swelling [Unknown]
  - Glossodynia [Unknown]
  - Lymphadenopathy [Unknown]
